FAERS Safety Report 8050250-0 (Version None)
Quarter: 2012Q1

REPORT INFORMATION
  Report Type: 
  Country: None (occurrence: None)
  Receive Date: 20120117
  Receipt Date: 20120110
  Transmission Date: 20120608
  Serious: Yes (Other)
  Sender: FDA-Public Use
  Company Number: BR-PFIZER INC-2012008144

PATIENT
  Age: 56 Year
  Sex: Female
  Weight: 71 kg

DRUGS (2)
  1. PANTOPRAZOLE [Concomitant]
     Indication: GASTRITIS
     Dosage: UNK
  2. LYRICA [Suspect]
     Indication: FIBROMYALGIA
     Dosage: 75 MG, 1X/DAY
     Route: 048
     Dates: start: 20120109, end: 20120109

REACTIONS (6)
  - FACE OEDEMA [None]
  - SWELLING FACE [None]
  - DIPLOPIA [None]
  - HEADACHE [None]
  - DIZZINESS [None]
  - EYELID OEDEMA [None]
